FAERS Safety Report 16577855 (Version 1)
Quarter: 2019Q3

REPORT INFORMATION
  Report Type: Spontaneous
  Country: IE (occurrence: IE)
  Receive Date: 20190716
  Receipt Date: 20190716
  Transmission Date: 20191004
  Serious: Yes (Other)
  Sender: FDA-Public Use
  Company Number: IE-009507513-1907IRL009507

PATIENT
  Age: 84 Year
  Sex: Female

DRUGS (10)
  1. ESOMEPRAZOLE. [Concomitant]
     Active Substance: ESOMEPRAZOLE MAGNESIUM
     Dosage: 40 / D
  2. AZOPT [Concomitant]
     Active Substance: BRINZOLAMIDE
     Dosage: Q12H (LONG TERM )
  3. XALATAN [Concomitant]
     Active Substance: LATANOPROST
     Dosage: STRENGTH: 0.005%W/V (NOCTE, LONG TERM)
  4. AVAMYS [Concomitant]
     Active Substance: FLUTICASONE FUROATE
     Dosage: UNK (LONG TERM)
  5. TELMISARTAN. [Concomitant]
     Active Substance: TELMISARTAN
     Dosage: 40 MILLIGRAM, Q24H (LONG TERM)
     Route: 048
  6. CALCICHEW D3 FORTE [Concomitant]
     Active Substance: CALCIUM\CHOLECALCIFEROL
     Dosage: Q12H (LONG TERM)
  7. DOXAZOSIN [Concomitant]
     Active Substance: DOXAZOSIN MESYLATE
     Dosage: Q24H (4 PR 1 DAILY (LONG TERM))
  8. FOSAMAX [Suspect]
     Active Substance: ALENDRONATE SODIUM
     Indication: OSTEOPOROSIS
     Dosage: 70 MILLIGRAM, QW
     Route: 048
     Dates: start: 20190402
  9. BISOPROLOL [Concomitant]
     Active Substance: BISOPROLOL
     Dosage: 1.25 (LONG TERM)
  10. RIVAROXABAN [Concomitant]
     Active Substance: RIVAROXABAN
     Dosage: 15 MILLIGRAM, Q24H (LONG TERM)
     Route: 048

REACTIONS (4)
  - Pain [Recovered/Resolved]
  - Swelling [Recovered/Resolved]
  - Pain in jaw [Recovered/Resolved]
  - Arthritis [Recovered/Resolved]

NARRATIVE: CASE EVENT DATE: 20190402
